FAERS Safety Report 17807137 (Version 1)
Quarter: 2020Q2

REPORT INFORMATION
  Report Type: Spontaneous
  Country: CN (occurrence: CN)
  Receive Date: 20200520
  Receipt Date: 20200520
  Transmission Date: 20200714
  Serious: Yes (Hospitalization)
  Sender: FDA-Public Use
  Company Number: CN-BAXTER-2020BAX010339

PATIENT
  Age: 22 Year
  Sex: Female
  Weight: 52 kg

DRUGS (6)
  1. 0.9% SODIUM CHLORIDE INJECTION [Suspect]
     Active Substance: SODIUM CHLORIDE
     Dosage: 0.9% NS 20 ML + VINCRISTINE 2 MG
     Route: 042
     Dates: start: 20200423, end: 20200423
  2. 0.9% SODIUM CHLORIDE INJECTION [Suspect]
     Active Substance: SODIUM CHLORIDE
     Dosage: 0.9% NS 250 ML + DAUNORUBICIN 80 MG
     Route: 041
     Dates: start: 20200423, end: 20200425
  3. 0.9% SODIUM CHLORIDE INJECTION [Suspect]
     Active Substance: SODIUM CHLORIDE
     Indication: MEDICATION DILUTION
     Dosage: 0. 9% NS 250 ML + ENDOXAN 0.5 G
     Route: 041
     Dates: start: 20200423, end: 20200423
  4. VINCRISTINE SULFATE. [Suspect]
     Active Substance: VINCRISTINE SULFATE
     Indication: B-CELL TYPE ACUTE LEUKAEMIA
     Dosage: 0.9% NS 20 ML + VINCRISTINE 2 MG
     Route: 042
     Dates: start: 20200423, end: 20200423
  5. DAUNORUBICIN HYDROCHLORIDE. [Suspect]
     Active Substance: DAUNORUBICIN HYDROCHLORIDE
     Indication: B-CELL TYPE ACUTE LEUKAEMIA
     Dosage: 0.9% NS 250 ML + DAUNORUBICIN 80 MG
     Route: 041
     Dates: start: 20200423, end: 20200425
  6. ENDOXAN [Suspect]
     Active Substance: CYCLOPHOSPHAMIDE
     Indication: B-CELL TYPE ACUTE LEUKAEMIA
     Dosage: 0.9% NS 250 ML + ENDOXAN 0.5 G
     Route: 041
     Dates: start: 20200423, end: 20200423

REACTIONS (1)
  - White blood cell count decreased [Not Recovered/Not Resolved]

NARRATIVE: CASE EVENT DATE: 20200427
